FAERS Safety Report 15835647 (Version 2)
Quarter: 2019Q1

REPORT INFORMATION
  Report Type: Report from Study
  Country: CA (occurrence: CA)
  Receive Date: 20190117
  Receipt Date: 20190121
  Transmission Date: 20190417
  Serious: Yes (Other)
  Sender: FDA-Public Use
  Company Number: CA-ROCHE-2168752

PATIENT
  Age: 57 Year
  Sex: Female
  Weight: 77 kg

DRUGS (3)
  1. ZOPICLONE [Concomitant]
     Active Substance: ZOPICLONE
  2. AVASTIN [Suspect]
     Active Substance: BEVACIZUMAB
     Indication: OVARIAN CANCER RECURRENT
     Route: 042
     Dates: start: 20180604
  3. RANITIDINE. [Concomitant]
     Active Substance: RANITIDINE

REACTIONS (13)
  - Blood pressure increased [Unknown]
  - Body temperature increased [Unknown]
  - Asthenia [Unknown]
  - Eastern Cooperative Oncology Group performance status worsened [Unknown]
  - Blood pressure diastolic increased [Unknown]
  - Haemoglobin decreased [Unknown]
  - Oxygen saturation decreased [Unknown]
  - Blood pressure systolic increased [Unknown]
  - Hypothyroidism [Not Recovered/Not Resolved]
  - Weight decreased [Unknown]
  - Blood pressure fluctuation [Unknown]
  - Heart rate decreased [Unknown]
  - Pulmonary oedema [Unknown]

NARRATIVE: CASE EVENT DATE: 20180809
